FAERS Safety Report 13183322 (Version 1)
Quarter: 2017Q1

REPORT INFORMATION
  Report Type: Spontaneous
  Country: US (occurrence: US)
  Receive Date: 20170202
  Receipt Date: 20170202
  Transmission Date: 20170428
  Serious: Yes (Hospitalization)
  Sender: FDA-Public Use
  Company Number: None

PATIENT
  Age: 10 Year
  Sex: Female

DRUGS (3)
  1. FAMOTIDINE. [Concomitant]
     Active Substance: FAMOTIDINE
  2. Q-PAP [Concomitant]
     Active Substance: ACETAMINOPHEN
  3. ZELBORAF [Suspect]
     Active Substance: VEMURAFENIB
     Indication: CENTRAL NERVOUS SYSTEM NEOPLASM
     Route: 048
     Dates: start: 20170111

REACTIONS (3)
  - White blood cell count decreased [None]
  - Pyrexia [None]
  - Rash generalised [None]

NARRATIVE: CASE EVENT DATE: 201701
